FAERS Safety Report 9916764 (Version 1)
Quarter: 2014Q1

REPORT INFORMATION
  Report Type: Report from Study
  Country: US (occurrence: US)
  Receive Date: 20140221
  Receipt Date: 20140221
  Transmission Date: 20141002
  Serious: Yes (Hospitalization)
  Sender: FDA-Public Use
  Company Number: US-US-EMD SERONO, INC.-7270495

PATIENT
  Age: 52 Year
  Sex: Female

DRUGS (1)
  1. REBIF [Suspect]
     Indication: MULTIPLE SCLEROSIS
     Route: 058
     Dates: start: 20111114

REACTIONS (8)
  - Diabetes mellitus [Unknown]
  - Pericardial effusion [Not Recovered/Not Resolved]
  - Multiple sclerosis [Unknown]
  - Fall [Unknown]
  - Contusion [Not Recovered/Not Resolved]
  - Contusion [Not Recovered/Not Resolved]
  - Tremor [Unknown]
  - Spinal pain [Not Recovered/Not Resolved]
